FAERS Safety Report 5822230-4 (Version None)
Quarter: 2008Q3

REPORT INFORMATION
  Report Type: 
  Country: None (occurrence: None)
  Receive Date: 20080725
  Receipt Date: 20080523
  Transmission Date: 20090109
  Serious: No
  Sender: FDA-Public Use
  Company Number: US-AMGEN-KDL281860

PATIENT
  Sex: Male

DRUGS (3)
  1. EPOGEN [Suspect]
     Indication: DIALYSIS
  2. EPOGEN [Suspect]
  3. UNSPECIFIED ANTIHYPERTENSIVE AGENT [Concomitant]

REACTIONS (1)
  - BLOOD PRESSURE FLUCTUATION [None]
